FAERS Safety Report 6702988-2 (Version None)
Quarter: 2010Q2

REPORT INFORMATION
  Report Type: 
  Country: None (occurrence: None)
  Receive Date: 20100429
  Receipt Date: 20100429
  Transmission Date: 20101027
  Serious: No
  Sender: FDA-Public Use
  Company Number: None

PATIENT
  Age: 59 Year
  Sex: Female
  Weight: 85.7298 kg

DRUGS (1)
  1. TYLENOL ARTHRITIS CAPLETS 650 MG MCNEIL-PPC, INC. [Suspect]
     Indication: BURSITIS
     Dosage: 2 CAPLETS 1 X DAILY PO
     Route: 048
     Dates: start: 20090822, end: 20091229

REACTIONS (2)
  - DIARRHOEA [None]
  - GASTRIC DISORDER [None]
